FAERS Safety Report 8123199-2 (Version None)
Quarter: 2012Q1

REPORT INFORMATION
  Report Type: 
  Country: None (occurrence: None)
  Receive Date: 20120208
  Receipt Date: 20120131
  Transmission Date: 20120608
  Serious: Yes (Other)
  Sender: FDA-Public Use
  Company Number: PT-JNJFOC-20120201904

PATIENT
  Age: 6 Year
  Sex: Male

DRUGS (5)
  1. MONTELUKAST [Concomitant]
  2. LEVOCETIRIZINE DIHYDROCHLORIDE [Concomitant]
  3. ACETAMINOPHEN [Suspect]
     Indication: HEADACHE
     Route: 048
  4. ACETAMINOPHEN [Suspect]
     Route: 048
  5. BUDESONIDE [Concomitant]
     Route: 045

REACTIONS (1)
  - ANAPHYLACTIC REACTION [None]
